FAERS Safety Report 24652747 (Version 2)
Quarter: 2025Q1

REPORT INFORMATION
  Report Type: Report from Study
  Country: CA (occurrence: CA)
  Receive Date: 20241122
  Receipt Date: 20250228
  Transmission Date: 20250409
  Serious: Yes (Other)
  Sender: BIOCON
  Company Number: CA-BIOCON BIOLOGICS LIMITED-BBL2024003292

PATIENT

DRUGS (5)
  1. HULIO [Suspect]
     Active Substance: ADALIMUMAB-FKJP
     Indication: Ankylosing spondylitis
     Route: 058
     Dates: start: 20220824, end: 202310
  2. HULIO [Suspect]
     Active Substance: ADALIMUMAB-FKJP
     Route: 058
  3. CLOMIPHENE [Concomitant]
     Active Substance: CLOMIPHENE
     Indication: Product used for unknown indication
     Route: 065
  4. HERBALS\TURMERIC [Concomitant]
     Active Substance: HERBALS\TURMERIC
     Indication: Product used for unknown indication
     Route: 065
  5. UREZOL [Concomitant]
     Indication: Adverse event
     Route: 065

REACTIONS (12)
  - Uveitis [Unknown]
  - Eye inflammation [Unknown]
  - Iritis [Unknown]
  - Alopecia [Unknown]
  - HLA marker study positive [Unknown]
  - Arthralgia [Unknown]
  - Joint stiffness [Unknown]
  - Dry eye [Unknown]
  - Dry mouth [Unknown]
  - Therapy cessation [Unknown]
  - Product dose omission issue [Unknown]
  - Product use issue [Unknown]

NARRATIVE: CASE EVENT DATE: 20170101
